FAERS Safety Report 18913353 (Version 2)
Quarter: 2021Q1

REPORT INFORMATION
  Report Type: Spontaneous
  Country: US (occurrence: US)
  Receive Date: 20210219
  Receipt Date: 20210304
  Transmission Date: 20210420
  Serious: Yes (Other)
  Sender: FDA-Public Use
  Company Number: US-LUNDBECK-DKLU3028759

PATIENT
  Age: 7 Year
  Sex: Female

DRUGS (6)
  1. SABRIL [Suspect]
     Active Substance: VIGABATRIN
     Indication: BURKHOLDERIA MALLEI INFECTION
     Route: 048
     Dates: start: 20140718
  2. SABRIL [Suspect]
     Active Substance: VIGABATRIN
     Indication: BURKHOLDERIA PSEUDOMALLEI INFECTION
  3. SABRIL [Suspect]
     Active Substance: VIGABATRIN
     Indication: RESPIRATION ABNORMAL
  4. SABRIL [Suspect]
     Active Substance: VIGABATRIN
     Indication: PSEUDOMONAS INFECTION
     Route: 048
     Dates: start: 20140718
  5. SABRIL [Suspect]
     Active Substance: VIGABATRIN
     Indication: INFANTILE SPASMS
  6. SABRIL [Suspect]
     Active Substance: VIGABATRIN
     Indication: STATUS EPILEPTICUS

REACTIONS (1)
  - Seizure [Unknown]
